FAERS Safety Report 10469949 (Version 1)
Quarter: 2014Q3

REPORT INFORMATION
  Report Type: Spontaneous
  Country: US (occurrence: US)
  Receive Date: 20140923
  Receipt Date: 20140923
  Transmission Date: 20150326
  Serious: No
  Sender: FDA-Public Use
  Company Number: US-SHIONOGI, INC-2014000629

PATIENT
  Age: 58 Year
  Sex: Female

DRUGS (3)
  1. OSPHENA [Suspect]
     Active Substance: OSPEMIFENE
     Dosage: UNK
     Route: 065
     Dates: start: 20140606
  2. ZOLOFT [Concomitant]
     Active Substance: SERTRALINE HYDROCHLORIDE
     Indication: PRODUCT USED FOR UNKNOWN INDICATION
     Dosage: UNK
     Route: 065
  3. LIPITOR [Concomitant]
     Active Substance: ATORVASTATIN CALCIUM
     Indication: PRODUCT USED FOR UNKNOWN INDICATION
     Dosage: UNK
     Route: 065
     Dates: start: 20140620

REACTIONS (1)
  - Vulvovaginal pruritus [Unknown]

NARRATIVE: CASE EVENT DATE: 20140622
